FAERS Safety Report 18188579 (Version 2)
Quarter: 2020Q3

REPORT INFORMATION
  Report Type: Spontaneous
  Country: JP (occurrence: JP)
  Receive Date: 20200824
  Receipt Date: 20200831
  Transmission Date: 20201103
  Serious: Yes (Other)
  Sender: FDA-Public Use
  Company Number: JP-TAIHO ONCOLOGY  INC-JPTT200240

PATIENT

DRUGS (3)
  1. PURGATIVES AND CLYSTERS [Concomitant]
     Indication: HEPATIC ENCEPHALOPATHY PROPHYLAXIS
     Dosage: DETAILS NOT REPORTED
     Route: 048
  2. AVASTIN [Concomitant]
     Active Substance: BEVACIZUMAB
     Indication: RECTAL CANCER
     Dosage: DETAILS NOT REPORTED
     Route: 041
  3. LONSURF [Suspect]
     Active Substance: TIPIRACIL HYDROCHLORIDE\TRIFLURIDINE
     Indication: RECTAL CANCER
     Dosage: DETAILS NOT REPORTED
     Route: 048

REACTIONS (2)
  - Hepatic encephalopathy [Recovering/Resolving]
  - Constipation [Unknown]
